FAERS Safety Report 8314809-5 (Version None)
Quarter: 2012Q2

REPORT INFORMATION
  Report Type: 
  Country: None (occurrence: None)
  Receive Date: 20120426
  Receipt Date: 20120412
  Transmission Date: 20120825
  Serious: No
  Sender: FDA-Public Use
  Company Number: US-BAYER-2012-040497

PATIENT

DRUGS (1)
  1. ALEVE (CAPLET) [Suspect]
     Indication: MYALGIA
     Route: 048

REACTIONS (4)
  - VERTIGO [None]
  - INNER EAR DISORDER [None]
  - BALANCE DISORDER [None]
  - TINNITUS [None]
